FAERS Safety Report 14514425 (Version 1)
Quarter: 2018Q1

REPORT INFORMATION
  Report Type: Spontaneous
  Country: US (occurrence: US)
  Receive Date: 20180209
  Receipt Date: 20180209
  Transmission Date: 20180509
  Serious: Yes (Hospitalization, Other)
  Sender: FDA-Public Use
  Company Number: US-BAUSCH-BL-2018-003524

PATIENT
  Age: 46 Year
  Sex: Female

DRUGS (4)
  1. PEMBROLIZUMAB. [Suspect]
     Active Substance: PEMBROLIZUMAB
     Indication: COLON CANCER
     Route: 042
     Dates: start: 20171116, end: 20171116
  2. CARBOPLATIN. [Suspect]
     Active Substance: CARBOPLATIN
     Indication: COLON CANCER
     Route: 042
     Dates: start: 20171116, end: 20171116
  3. EPACADOSTAT [Suspect]
     Active Substance: EPACADOSTAT
     Indication: COLON CANCER
     Route: 048
     Dates: start: 20171116, end: 20171120
  4. 5-FLUOROURACIL [Suspect]
     Active Substance: FLUOROURACIL
     Indication: COLON CANCER
     Route: 042
     Dates: start: 20171116, end: 20171116

REACTIONS (4)
  - Vomiting [Not Recovered/Not Resolved]
  - Nausea [Not Recovered/Not Resolved]
  - Dehydration [Not Recovered/Not Resolved]
  - Spinal cord compression [Not Recovered/Not Resolved]

NARRATIVE: CASE EVENT DATE: 20171120
